FAERS Safety Report 21450846 (Version 1)
Quarter: 2022Q4

REPORT INFORMATION
  Report Type: Spontaneous
  Country: US (occurrence: US)
  Receive Date: 20221013
  Receipt Date: 20221013
  Transmission Date: 20230113
  Serious: No
  Sender: FDA-Public Use
  Company Number: US-BAYER-2022A136582

PATIENT
  Age: 89 Year
  Sex: Female

DRUGS (4)
  1. ALEVE [Suspect]
     Active Substance: NAPROXEN SODIUM
     Indication: Back pain
     Dosage: 8 DF
     Route: 048
     Dates: start: 202209, end: 20220930
  2. ALEVE [Suspect]
     Active Substance: NAPROXEN SODIUM
     Indication: Pain
  3. ALEVE [Suspect]
     Active Substance: NAPROXEN SODIUM
     Indication: Arthritis
  4. GABAPENTIN [Suspect]
     Active Substance: GABAPENTIN

REACTIONS (2)
  - Somnolence [Recovered/Resolved]
  - Expired product administered [Recovered/Resolved]

NARRATIVE: CASE EVENT DATE: 20220901
